APPROVED DRUG PRODUCT: CIPROFLOXACIN HYDROCHLORIDE AND HYDROCORTISONE
Active Ingredient: CIPROFLOXACIN HYDROCHLORIDE; HYDROCORTISONE
Strength: EQ 0.2% BASE;1%
Dosage Form/Route: SUSPENSION/DROPS;OTIC
Application: A218273 | Product #001 | TE Code: AB
Applicant: COSETTE PHARMACEUTICALS NC LABORATORIES LLC
Approved: Nov 10, 2025 | RLD: No | RS: No | Type: RX

EXCLUSIVITY:
Code: CGT | Date: Jun 2, 2026